FAERS Safety Report 15839836 (Version 1)
Quarter: 2019Q1

REPORT INFORMATION
  Report Type: Spontaneous
  Country: US (occurrence: US)
  Receive Date: 20190117
  Receipt Date: 20190117
  Transmission Date: 20190417
  Serious: Yes (Hospitalization)
  Sender: FDA-Public Use
  Company Number: US-ACTELION-A-US2019-184894

PATIENT
  Age: 41 Year
  Sex: Female

DRUGS (7)
  1. VITAMIN B COMPLEX [Concomitant]
     Active Substance: CYANOCOBALAMIN\DEXPANTHENOL\NIACINAMIDE\PYRIDOXINE HYDROCHLORIDE\RIBOFLAVIN 5^-PHOSPHATE SODIUM\THIAMINE HYDROCHLORIDE\VITAMIN B COMPLEX
     Dosage: UNK, QD
     Route: 048
     Dates: start: 20160204
  2. ZAVESCA [Suspect]
     Active Substance: MIGLUSTAT
     Indication: TAY-SACHS DISEASE
     Dosage: 2 CAPS 3 TIMES DAILY
     Route: 048
     Dates: start: 20160205
  3. DARAPRIM [Concomitant]
     Active Substance: PYRIMETHAMINE
     Dosage: 25 MG, QD
     Route: 048
     Dates: start: 20160204
  4. ESTRADIOL. [Concomitant]
     Active Substance: ESTRADIOL
     Dosage: 1 PATCH 2XW
     Route: 061
     Dates: start: 20160204
  5. VITAMINS NOS [Concomitant]
     Active Substance: VITAMINS
     Dosage: UNK, QD
     Route: 048
     Dates: start: 20160204
  6. LEUCOVORIN CALCIUM. [Concomitant]
     Active Substance: LEUCOVORIN CALCIUM
     Dosage: 5 MG, QD
     Route: 048
     Dates: start: 20160204
  7. VITAMIN D [Concomitant]
     Active Substance: CHOLECALCIFEROL
     Dosage: 5000 U, QD
     Route: 048
     Dates: start: 20160204

REACTIONS (2)
  - Knee operation [Unknown]
  - Fall [Unknown]
